FAERS Safety Report 23991294 (Version 2)
Quarter: 2024Q3

REPORT INFORMATION
  Report Type: Spontaneous
  Country: DE (occurrence: DE)
  Receive Date: 20240619
  Receipt Date: 20240701
  Transmission Date: 20241017
  Serious: Yes (Death, Life-Threatening, Hospitalization, Other)
  Sender: BAUSCH AND LOMB
  Company Number: None

PATIENT
  Sex: Female

DRUGS (3)
  1. DICLOFENAC [Suspect]
     Active Substance: DICLOFENAC
     Indication: Arthritis
     Route: 065
  2. METHOTREXATE [Suspect]
     Active Substance: METHOTREXATE
     Indication: Arthritis
     Route: 065
  3. METAMIZOLE [Suspect]
     Active Substance: METAMIZOLE
     Indication: Arthritis
     Route: 065

REACTIONS (6)
  - Pneumonia [Fatal]
  - Gastritis haemorrhagic [Fatal]
  - Toxicity to various agents [Unknown]
  - Myelosuppression [Unknown]
  - Nephropathy toxic [Unknown]
  - Agranulocytosis [Not Recovered/Not Resolved]
